FAERS Safety Report 7453905 (Version 3)
Quarter: 2020Q3

REPORT INFORMATION
  Report Type: Spontaneous
  Country: US (occurrence: US)
  Receive Date: 20100706
  Receipt Date: 20100917
  Transmission Date: 20201104
  Serious: Yes (Other)
  Sender: FDA-Public Use
  Company Number: US-ROCHE-712584

PATIENT
  Age: 69 Year
  Sex: Female

DRUGS (7)
  1. PEGASYS [Suspect]
     Active Substance: PEGINTERFERON ALFA-2A
     Route: 058
  2. SYNTHROID [Concomitant]
     Active Substance: LEVOTHYROXINE SODIUM
  3. PEGASYS [Suspect]
     Active Substance: PEGINTERFERON ALFA-2A
     Dosage: FORM: VIAL
     Route: 058
     Dates: start: 201002
  4. PLAQUENIL [Concomitant]
     Active Substance: HYDROXYCHLOROQUINE SULFATE
  5. IBANDRONIC ACID. [Suspect]
     Active Substance: IBANDRONIC ACID
     Indication: PRODUCT USED FOR UNKNOWN INDICATION
     Route: 065
  6. MEVACOR [Concomitant]
     Active Substance: LOVASTATIN
  7. ATIVAN [Concomitant]
     Active Substance: LORAZEPAM

REACTIONS (4)
  - Drug ineffective [Unknown]
  - Platelet count increased [Not Recovered/Not Resolved]
  - Product quality issue [Unknown]
  - Off label use [None]

NARRATIVE: CASE EVENT DATE: 20100623
